FAERS Safety Report 9481984 (Version 4)
Quarter: 2016Q2

REPORT INFORMATION
  Report Type: Report from Study
  Country: US (occurrence: US)
  Receive Date: 20130828
  Receipt Date: 20160530
  Transmission Date: 20160815
  Serious: Yes (Death, Hospitalization)
  Sender: FDA-Public Use
  Company Number: US-ROCHE-1266192

PATIENT
  Age: 64 Year
  Sex: Female

DRUGS (6)
  1. XELODA [Suspect]
     Active Substance: CAPECITABINE
     Indication: COLON CANCER
     Dosage: 3 PILLS IN AM, 2 AT PM.  2 WEEKS ON 3 WEEKS OFF
     Route: 048
     Dates: end: 20130820
  2. TRAMADOL. [Concomitant]
     Active Substance: TRAMADOL
     Indication: PAIN
  3. XELODA [Suspect]
     Active Substance: CAPECITABINE
     Indication: RECTAL CANCER
     Dosage: 2 WEEKS ON 3 WEEKS OFF , 3 IN THE MORNING AND 3 AT NIGHT
     Route: 048
     Dates: start: 20130820
  4. XELODA [Suspect]
     Active Substance: CAPECITABINE
     Route: 048
     Dates: start: 201212, end: 201308
  5. XELODA [Suspect]
     Active Substance: CAPECITABINE
     Dosage: 500 MG 3 PILLS IN THE MORNING AND 3 PILLS AT NIGHT
     Route: 048
  6. OXALIPLATIN. [Concomitant]
     Active Substance: OXALIPLATIN
     Indication: RECTAL CANCER

REACTIONS (10)
  - Diarrhoea [Unknown]
  - Back pain [Recovered/Resolved]
  - Death [Fatal]
  - Rectal neoplasm [Unknown]
  - Asthenia [Unknown]
  - Drug intolerance [Unknown]
  - Hypovolaemia [Unknown]
  - Vomiting [Unknown]
  - Somnolence [Unknown]
  - Fatigue [Unknown]

NARRATIVE: CASE EVENT DATE: 20131114
